FAERS Safety Report 8108876-1 (Version None)
Quarter: 2012Q1

REPORT INFORMATION
  Report Type: 
  Country: None (occurrence: None)
  Receive Date: 20120202
  Receipt Date: 20120126
  Transmission Date: 20120608
  Serious: Yes (Other)
  Sender: FDA-Public Use
  Company Number: CA-GLAXOSMITHKLINE-A0961863A

PATIENT
  Sex: Female

DRUGS (3)
  1. NEULEPTIL [Concomitant]
  2. LAMICTAL [Suspect]
     Indication: PRODUCT USED FOR UNKNOWN INDICATION
     Dosage: 5MG UNKNOWN
     Route: 065
  3. RITALIN [Concomitant]

REACTIONS (2)
  - SUNBURN [None]
  - HALLUCINATION [None]
